FAERS Safety Report 22400139 (Version 1)
Quarter: 2023Q2

REPORT INFORMATION
  Report Type: Spontaneous
  Country: None (occurrence: FR)
  Receive Date: 20230602
  Receipt Date: 20230602
  Transmission Date: 20230721
  Serious: Yes (Hospitalization)
  Sender: FDA-Public Use
  Company Number: FR-B.Braun Medical Inc.-2142296

PATIENT
  Age: 19 Year
  Sex: Female
  Weight: 56 kg

DRUGS (5)
  1. ACETAMINOPHEN [Suspect]
     Active Substance: ACETAMINOPHEN
     Indication: Toothache
     Dates: start: 20210326, end: 20210330
  2. DOLIPRANE [Suspect]
     Active Substance: ACETAMINOPHEN
  3. IBUPROFEN [Suspect]
     Active Substance: IBUPROFEN
  4. TRAMADOL [Suspect]
     Active Substance: TRAMADOL
  5. IXPRIM [Suspect]
     Active Substance: ACETAMINOPHEN\TRAMADOL HYDROCHLORIDE

REACTIONS (2)
  - Abdominal pain [Recovered/Resolved]
  - Incorrect dosage administered [Recovered/Resolved]
